FAERS Safety Report 25225048 (Version 1)
Quarter: 2025Q2

REPORT INFORMATION
  Report Type: Spontaneous
  Country: CN (occurrence: CN)
  Receive Date: 20250422
  Receipt Date: 20250422
  Transmission Date: 20250716
  Serious: Yes (Other)
  Sender: BEIGENE
  Company Number: CN-SA-2024SA284475

PATIENT
  Age: 48 Year

DRUGS (4)
  1. TISLELIZUMAB [Suspect]
     Active Substance: TISLELIZUMAB
     Indication: Rectal adenocarcinoma
  2. OXALIPLATIN [Suspect]
     Active Substance: OXALIPLATIN
     Indication: Rectal adenocarcinoma
  3. BEVACIZUMAB [Suspect]
     Active Substance: BEVACIZUMAB
     Indication: Rectal adenocarcinoma
  4. CAPECITABINE [Suspect]
     Active Substance: CAPECITABINE
     Indication: Rectal adenocarcinoma

REACTIONS (23)
  - Necrotising fasciitis [Unknown]
  - Alpha haemolytic streptococcal infection [Unknown]
  - Septic encephalopathy [Unknown]
  - Septic shock [Unknown]
  - Anal abscess [Unknown]
  - Scrotal discomfort [Unknown]
  - Anorectal discomfort [Unknown]
  - Hyperlactacidaemia [Unknown]
  - Proctalgia [Unknown]
  - Respiratory alkalosis [Unknown]
  - Escherichia infection [Unknown]
  - Erythema [Unknown]
  - Groin pain [Unknown]
  - Tumour exudation [Unknown]
  - Flatulence [Unknown]
  - Musculoskeletal pain [Unknown]
  - Metabolic acidosis [Unknown]
  - Scrotal pain [Unknown]
  - Pyrexia [Unknown]
  - Musculoskeletal discomfort [Unknown]
  - Abscess rupture [Unknown]
  - Dermatitis [Unknown]
  - Swelling [Unknown]
